FAERS Safety Report 10007818 (Version 2)
Quarter: 2014Q1

REPORT INFORMATION
  Report Type: Spontaneous
  Country: US (occurrence: US)
  Receive Date: 20140313
  Receipt Date: 20140313
  Transmission Date: 20141002
  Serious: No
  Sender: FDA-Public Use
  Company Number: US-GILEAD-2013-0070672

PATIENT
  Age: 55 Year
  Sex: Male

DRUGS (4)
  1. LETAIRIS [Suspect]
     Indication: PULMONARY ARTERIAL HYPERTENSION
     Route: 048
     Dates: start: 20121010, end: 20130123
  2. ADVAIR [Concomitant]
  3. SPIRIVA [Concomitant]
  4. PREDNISONE [Concomitant]

REACTIONS (1)
  - Nasal congestion [Unknown]
